FAERS Safety Report 12712138 (Version 1)
Quarter: 2016Q3

REPORT INFORMATION
  Report Type: Spontaneous
  Country: US (occurrence: US)
  Receive Date: 20160902
  Receipt Date: 20160902
  Transmission Date: 20161109
  Serious: Yes (Life-Threatening)
  Sender: FDA-Public Use
  Company Number: None

PATIENT
  Age: 61 Year
  Sex: Male
  Weight: 113.6 kg

DRUGS (2)
  1. CEFEPIME [Suspect]
     Active Substance: CEFEPIME HYDROCHLORIDE
     Indication: SURGERY
     Dosage: 1 GM OTHER IV
     Route: 042
     Dates: start: 20160826, end: 20160827
  2. VANCOMYCIN [Suspect]
     Active Substance: VANCOMYCIN
     Indication: SURGERY
     Dosage: 1500 MG OTHER IV
     Route: 042
     Dates: start: 20160826, end: 20160831

REACTIONS (2)
  - Tremor [None]
  - Pyrexia [None]

NARRATIVE: CASE EVENT DATE: 20160826
